FAERS Safety Report 10328774 (Version 2)
Quarter: 2014Q3

REPORT INFORMATION
  Report Type: Spontaneous
  Country: IT (occurrence: IT)
  Receive Date: 20140721
  Receipt Date: 20140721
  Transmission Date: 20150326
  Serious: Yes (Hospitalization)
  Sender: FDA-Public Use
  Company Number: PHHY2014IT043049

PATIENT
  Age: 34 Year
  Sex: Female

DRUGS (3)
  1. AMLODIPINE [Suspect]
     Active Substance: AMLODIPINE BESYLATE
     Indication: INTENTIONAL SELF-INJURY
     Dosage: 14 DF, ONCE/SINGLE
     Route: 048
     Dates: start: 20130925, end: 20130925
  2. RAMIPRIL. [Suspect]
     Active Substance: RAMIPRIL
     Indication: INTENTIONAL SELF-INJURY
     Dosage: 21 DF, ONCE/SINGLE
     Route: 048
     Dates: start: 20130925, end: 20130925
  3. DELTACORTENE [Suspect]
     Active Substance: PREDNISONE
     Indication: INTENTIONAL SELF-INJURY
     Dosage: 30 MG, ONCE/SINGLE
     Route: 048
     Dates: start: 20130925, end: 20130925

REACTIONS (2)
  - Drug abuse [Recovered/Resolved]
  - Hypotension [Recovered/Resolved]

NARRATIVE: CASE EVENT DATE: 20130925
